FAERS Safety Report 9193943 (Version 2)
Quarter: 2013Q2

REPORT INFORMATION
  Report Type: Spontaneous
  Country: CA (occurrence: CA)
  Receive Date: 20130327
  Receipt Date: 20130409
  Transmission Date: 20140414
  Serious: Yes (Other)
  Sender: FDA-Public Use
  Company Number: CHPA2013CA005116

PATIENT
  Age: 53 Year
  Sex: Male

DRUGS (3)
  1. BENEFIBER [Suspect]
     Indication: IRRITABLE BOWEL SYNDROME
     Dosage: 6 TSP, QD
     Route: 048
  2. BENEFIBER [Suspect]
     Dosage: UNK, UNK FOR 2 WEEKS/YR
     Route: 048
  3. BENEFIBER STICK PACKS [Suspect]
     Indication: IRRITABLE BOWEL SYNDROME
     Dosage: 1 DF, 2-3 TIMES DAILY A COUPLE OF TIMES A YEAR WHEN TRAVELLING

REACTIONS (9)
  - Gastrointestinal disorder [Unknown]
  - Haematochezia [Recovered/Resolved]
  - Pain [Unknown]
  - Dehydration [Recovered/Resolved]
  - Constipation [Recovered/Resolved]
  - Fluid intake reduced [Recovered/Resolved]
  - Abdominal distension [Recovered/Resolved]
  - Flatulence [Recovered/Resolved]
  - Off label use [Unknown]
